FAERS Safety Report 21534293 (Version 1)
Quarter: 2022Q4

REPORT INFORMATION
  Report Type: Spontaneous
  Country: US (occurrence: US)
  Receive Date: 20221101
  Receipt Date: 20221101
  Transmission Date: 20230112
  Serious: Yes (Life-Threatening, Hospitalization, Other)
  Sender: FDA-Public Use
  Company Number: US-JUBILANT CADISTA PHARMACEUTICALS-2022JUB00394

PATIENT
  Age: 55 Year
  Sex: Female

DRUGS (5)
  1. ESCITALOPRAM [Suspect]
     Active Substance: ESCITALOPRAM OXALATE
     Dosage: 10 MG, 1X/DAY
     Route: 065
  2. ESCITALOPRAM [Suspect]
     Active Substance: ESCITALOPRAM OXALATE
     Dosage: 20 MG, 1X/DAY
     Route: 065
  3. METOPROLOL [Suspect]
     Active Substance: METOPROLOL
     Dosage: 300 MG, 1X/DAY
     Route: 065
  4. DILTIAZEM [Suspect]
     Active Substance: DILTIAZEM
     Dosage: 360 MG, 1X/DAY, LONG-ACTING
     Route: 065
  5. OMEPRAZOLE [Suspect]
     Active Substance: OMEPRAZOLE
     Dosage: 20 MG, 1X/DAY
     Route: 065

REACTIONS (3)
  - Atrioventricular block complete [Recovering/Resolving]
  - Drug interaction [Unknown]
  - Drug level increased [Unknown]
